FAERS Safety Report 8326083-4 (Version None)
Quarter: 2012Q2

REPORT INFORMATION
  Report Type: 
  Country: None (occurrence: None)
  Receive Date: 20120501
  Receipt Date: 20120425
  Transmission Date: 20120825
  Serious: Yes (Hospitalization, Other)
  Sender: FDA-Public Use
  Company Number: DE-GLAXOSMITHKLINE-B0798562A

PATIENT
  Sex: Female
  Weight: 63 kg

DRUGS (8)
  1. GRANISETRON [Concomitant]
     Dates: start: 20120317
  2. TRASTUZUMAB [Suspect]
     Indication: BREAST CANCER METASTATIC
     Dosage: 378MG EVERY 3 WEEKS
     Route: 042
     Dates: start: 20120327
  3. LAPATINIB [Suspect]
     Indication: BREAST CANCER METASTATIC
     Dosage: 500MG PER DAY
     Route: 048
     Dates: start: 20120327
  4. FENISTIL [Concomitant]
     Dates: start: 20120317
  5. PACLITAXEL [Suspect]
     Indication: BREAST CANCER METASTATIC
     Dosage: 104MG WEEKLY
     Route: 042
     Dates: start: 20120327
  6. LOPERAMIDE [Concomitant]
     Dates: start: 20120317
  7. DOXORUBICIN HCL [Suspect]
     Indication: BREAST CANCER METASTATIC
     Dosage: 26MG WEEKLY
     Route: 042
     Dates: start: 20120327
  8. CARBOPLATIN [Suspect]
     Indication: BREAST CANCER METASTATIC
     Dosage: 161MG WEEKLY
     Route: 042
     Dates: start: 20120327

REACTIONS (1)
  - EMBOLISM [None]
